FAERS Safety Report 5076986-1 (Version None)
Quarter: 2006Q3

REPORT INFORMATION
  Report Type: 
  Country: None (occurrence: None)
  Receive Date: 20060810
  Receipt Date: 20060808
  Transmission Date: 20061208
  Serious: Yes (Other)
  Sender: FDA-Public Use
  Company Number: DE-GLAXOSMITHKLINE-D0050560A

PATIENT
  Age: 54 Year
  Sex: Female

DRUGS (2)
  1. ELMENDOS [Suspect]
     Dosage: 125MG PER DAY
     Route: 048
     Dates: start: 20060301
  2. LEPONEX [Concomitant]
     Route: 065

REACTIONS (1)
  - INCONTINENCE [None]
